FAERS Safety Report 19926475 (Version 1)
Quarter: 2021Q4

REPORT INFORMATION
  Report Type: Report from Study
  Country: DE (occurrence: BR)
  Receive Date: 20211006
  Receipt Date: 20211006
  Transmission Date: 20220303
  Serious: Yes (Hospitalization)
  Sender: FDA-Public Use
  Company Number: BR-MERCK HEALTHCARE KGAA-9268925

PATIENT
  Age: 51 Year
  Sex: Male

DRUGS (2)
  1. CETUXIMAB [Suspect]
     Active Substance: CETUXIMAB
     Indication: Head and neck cancer metastatic
     Dosage: 250 MG/M2, WEEKLY (1/W)
     Route: 042
     Dates: start: 20200511, end: 20201104
  2. CETUXIMAB [Suspect]
     Active Substance: CETUXIMAB
     Dosage: 250 MG/M2, WEEKLY (1/W)
     Route: 042
     Dates: start: 20210415

REACTIONS (6)
  - Tumour pain [Not Recovered/Not Resolved]
  - Dysphagia [Not Recovered/Not Resolved]
  - Decubitus ulcer [Not Recovered/Not Resolved]
  - Bedridden [Not Recovered/Not Resolved]
  - Malignant neoplasm progression [Not Recovered/Not Resolved]
  - Weight decreased [Not Recovered/Not Resolved]

NARRATIVE: CASE EVENT DATE: 20210101
